FAERS Safety Report 7993004-3 (Version None)
Quarter: 2011Q4

REPORT INFORMATION
  Report Type: 
  Country: None (occurrence: None)
  Receive Date: 20111219
  Receipt Date: 20110927
  Transmission Date: 20120403
  Serious: No
  Sender: FDA-Public Use
  Company Number: US-ASTRAZENECA-2011SE58214

PATIENT
  Age: 40 Year
  Sex: Female

DRUGS (3)
  1. CRESTOR [Suspect]
     Route: 048
  2. INSULIN [Concomitant]
  3. HIGH BLOOD PRESSURE MEDICATION [Concomitant]

REACTIONS (4)
  - HYPERTENSION [None]
  - LIVER FUNCTION TEST ABNORMAL [None]
  - DIABETES MELLITUS [None]
  - DYSLIPIDAEMIA [None]
